FAERS Safety Report 7700933-4 (Version None)
Quarter: 2011Q3

REPORT INFORMATION
  Report Type: 
  Country: None (occurrence: None)
  Receive Date: 20110822
  Receipt Date: 20110812
  Transmission Date: 20111222
  Serious: Yes (Other)
  Sender: FDA-Public Use
  Company Number: US-ROCHE-797292

PATIENT
  Sex: Female
  Weight: 93.4 kg

DRUGS (9)
  1. ZOCOR [Concomitant]
     Dates: start: 20060822
  2. ACTEMRA [Suspect]
     Indication: RHEUMATOID ARTHRITIS
     Route: 042
     Dates: start: 20110603
  3. ORENCIA [Concomitant]
  4. MS CONTIN [Concomitant]
     Dates: start: 20100809
  5. ACTEMRA [Suspect]
     Route: 042
     Dates: start: 20110810
  6. FLEXERIL [Concomitant]
     Dates: start: 20100809
  7. SYNTHROID [Concomitant]
     Dates: start: 20070313
  8. ORENCIA [Concomitant]
     Route: 042
  9. ACTEMRA [Suspect]
     Route: 042
     Dates: start: 20110701

REACTIONS (4)
  - COMA [None]
  - RESPIRATORY DISORDER [None]
  - FLUSHING [None]
  - MALAISE [None]
